FAERS Safety Report 9811866 (Version 4)
Quarter: 2016Q4

REPORT INFORMATION
  Report Type: Spontaneous
  Country: US (occurrence: US)
  Receive Date: 20140110
  Receipt Date: 20161219
  Transmission Date: 20170207
  Serious: Yes (Other)
  Sender: FDA-Public Use
  Company Number: US-SANOFI-AVENTIS-2013SA068479

PATIENT
  Age: 73 Year
  Sex: Male
  Weight: 63.23 kg

DRUGS (41)
  1. FLAXSEED [Concomitant]
     Active Substance: FLAX SEED
  2. PLAVIX [Suspect]
     Active Substance: CLOPIDOGREL BISULFATE
     Indication: ARTERIOSCLEROSIS
     Route: 048
     Dates: start: 20101108, end: 20111109
  3. RANITIDINE. [Concomitant]
     Active Substance: RANITIDINE
     Dosage: STRENGTH: 150 MG
     Route: 048
  4. DIPHENHYDRAMINE. [Concomitant]
     Active Substance: DIPHENHYDRAMINE
     Dosage: STRENGTH: 25 MG?FREQUENCY: AT BEDTIME AS NEEDED
     Route: 048
  5. VITAMIN B1 [Concomitant]
     Active Substance: THIAMINE HYDROCHLORIDE
  6. VIAGRA [Concomitant]
     Active Substance: SILDENAFIL CITRATE
  7. COLCRYS [Concomitant]
     Active Substance: COLCHICINE
     Indication: GOUT
     Route: 048
     Dates: end: 20140811
  8. DONEPEZIL. [Concomitant]
     Active Substance: DONEPEZIL
     Dosage: ROUTE: VIA MOUTH
     Route: 048
  9. INDOMETHACIN. [Concomitant]
     Active Substance: INDOMETHACIN
  10. PLAVIX [Suspect]
     Active Substance: CLOPIDOGREL BISULFATE
     Indication: ARTERIOSCLEROSIS
     Route: 048
     Dates: start: 20090921, end: 20100922
  11. ASPIRIN. [Concomitant]
     Active Substance: ASPIRIN
     Route: 048
  12. SIMVASTATIN. [Concomitant]
     Active Substance: SIMVASTATIN
     Indication: BLOOD CHOLESTEROL
     Dosage: VIA MOUTH
     Route: 048
  13. EPOGEN [Concomitant]
     Active Substance: ERYTHROPOIETIN
  14. GEMFIBROZIL. [Concomitant]
     Active Substance: GEMFIBROZIL
     Dosage: VIA MOUTH
     Route: 048
     Dates: end: 20150108
  15. NITROSTAT [Concomitant]
     Active Substance: NITROGLYCERIN
     Dosage: THE TONGUE Q5MIN AS NEEDED
     Route: 058
  16. OXYCODONE [Concomitant]
     Active Substance: OXYCODONE
     Indication: PAIN
     Dosage: DOSE-5-325
  17. SERTRALINE [Concomitant]
     Active Substance: SERTRALINE HYDROCHLORIDE
  18. ECOTRIN [Concomitant]
     Active Substance: ASPIRIN
  19. VITAMIN B12 [Concomitant]
     Active Substance: CYANOCOBALAMIN
  20. CIPRO [Concomitant]
     Active Substance: CIPROFLOXACIN HYDROCHLORIDE
  21. MECLIZINE [Concomitant]
     Active Substance: MECLIZINE HYDROCHLORIDE
     Indication: DIZZINESS
  22. POTASSIUM [Concomitant]
     Active Substance: POTASSIUM
  23. ALLOPURINOL. [Concomitant]
     Active Substance: ALLOPURINOL
     Dosage: STRENGTH: 100 MG
     Route: 048
  24. FISH OIL [Concomitant]
     Active Substance: FISH OIL
     Route: 048
  25. MELATONIN [Concomitant]
     Active Substance: MELATONIN
  26. CALCIUM [Concomitant]
     Active Substance: CALCIUM
  27. PLAVIX [Suspect]
     Active Substance: CLOPIDOGREL BISULFATE
     Indication: ARTERIOSCLEROSIS
     Route: 065
     Dates: start: 20050801
  28. PLAVIX [Suspect]
     Active Substance: CLOPIDOGREL BISULFATE
     Indication: ARTERIOSCLEROSIS
     Route: 065
     Dates: start: 20050824, end: 20060825
  29. ZOSYN [Concomitant]
     Active Substance: PIPERACILLIN SODIUM\TAZOBACTAM SODIUM
  30. BIOTIN [Concomitant]
     Active Substance: BIOTIN
     Route: 048
  31. FERROUS SULFATE. [Concomitant]
     Active Substance: FERROUS SULFATE
     Route: 048
     Dates: end: 20120710
  32. PLAVIX [Suspect]
     Active Substance: CLOPIDOGREL BISULFATE
     Indication: ARTERIOSCLEROSIS
     Route: 048
     Dates: start: 20111121, end: 20120105
  33. SIMVASTATIN. [Concomitant]
     Active Substance: SIMVASTATIN
     Indication: BLOOD CHOLESTEROL
     Route: 048
     Dates: end: 20150108
  34. LOSARTAN. [Concomitant]
     Active Substance: LOSARTAN
     Indication: CARDIAC DISORDER
     Route: 048
     Dates: end: 20150108
  35. CYANOCOBALAMIN. [Concomitant]
     Active Substance: CYANOCOBALAMIN
     Route: 030
  36. ISOSORBIDE MONONITRATE. [Concomitant]
     Active Substance: ISOSORBIDE MONONITRATE
     Indication: CARDIAC DISORDER
     Route: 048
  37. CALCITROL [Concomitant]
     Active Substance: CALCITRIOL
     Dosage: STRENGTH: 0.25 MCG
     Route: 048
     Dates: end: 20140506
  38. NITROQUICK [Concomitant]
     Active Substance: NITROGLYCERIN
  39. NITROGLYCERINE [Concomitant]
     Active Substance: NITROGLYCERIN
     Dosage: FREQUENCY: EVERY 5 MINUTE AS NEEDED AND ROUTE: SUBLINGUAL
     Route: 060
     Dates: end: 20150108
  40. LASIX [Concomitant]
     Active Substance: FUROSEMIDE
  41. VALSARTAN. [Concomitant]
     Active Substance: VALSARTAN

REACTIONS (1)
  - Gastrointestinal haemorrhage [Unknown]

NARRATIVE: CASE EVENT DATE: 201110
